FAERS Safety Report 21872355 (Version 2)
Quarter: 2023Q1

REPORT INFORMATION
  Report Type: Spontaneous
  Country: US (occurrence: US)
  Receive Date: 20230117
  Receipt Date: 20230210
  Transmission Date: 20230418
  Serious: Yes (Hospitalization, Other)
  Sender: FDA-Public Use
  Company Number: US-ELI_LILLY_AND_COMPANY-US202301003935

PATIENT
  Age: 27 Year
  Sex: Female

DRUGS (2)
  1. MOUNJARO [Suspect]
     Active Substance: TIRZEPATIDE
     Indication: Glucose tolerance impaired
     Dosage: 5 MG, UNKNOWN
     Route: 058
     Dates: start: 20221230
  2. MOUNJARO [Suspect]
     Active Substance: TIRZEPATIDE
     Indication: Overweight

REACTIONS (15)
  - Muscle spasms [Unknown]
  - Neck pain [Not Recovered/Not Resolved]
  - Dizziness [Recovering/Resolving]
  - Feeding disorder [Unknown]
  - Fluid intake reduced [Unknown]
  - Blood pressure increased [Recovering/Resolving]
  - Lethargy [Unknown]
  - Vomiting [Unknown]
  - Nausea [Recovering/Resolving]
  - Retching [Unknown]
  - Abdominal pain upper [Unknown]
  - Sleep disorder due to general medical condition, insomnia type [Unknown]
  - Pain [Unknown]
  - Off label use [Unknown]
  - Inappropriate schedule of product administration [Unknown]

NARRATIVE: CASE EVENT DATE: 20221230
